FAERS Safety Report 21790478 (Version 1)
Quarter: 2022Q4

REPORT INFORMATION
  Report Type: Report from Study
  Country: US (occurrence: US)
  Receive Date: 20221228
  Receipt Date: 20221228
  Transmission Date: 20230112
  Serious: No
  Sender: FDA-Public Use
  Company Number: US-CLOVIS ONCOLOGY-CLO-2022-000252

PATIENT
  Sex: Female

DRUGS (3)
  1. RUBRACA [Suspect]
     Active Substance: RUCAPARIB CAMSYLATE
     Indication: Ovarian cancer
     Dosage: 600 MILLIGRAM, BID
     Route: 048
     Dates: start: 20220213
  2. RUBRACA [Suspect]
     Active Substance: RUCAPARIB CAMSYLATE
     Dosage: 600 MILLIGRAM, BID
     Route: 048
     Dates: start: 202202
  3. RUBRACA [Suspect]
     Active Substance: RUCAPARIB CAMSYLATE
     Dosage: 600 MILLIGRAM, BID
     Route: 048
     Dates: start: 20220211

REACTIONS (18)
  - Pain in extremity [Unknown]
  - Bone pain [Not Recovered/Not Resolved]
  - Colonoscopy [Unknown]
  - Sensitive skin [Not Recovered/Not Resolved]
  - Bleeding time prolonged [Unknown]
  - Impaired healing [Unknown]
  - Oropharyngeal pain [Unknown]
  - Illness [Unknown]
  - Aphonia [Recovered/Resolved]
  - Blood magnesium decreased [Not Recovered/Not Resolved]
  - Cough [Recovered/Resolved]
  - Viral infection [Unknown]
  - Nasal congestion [Unknown]
  - Headache [Recovering/Resolving]
  - Nausea [Recovering/Resolving]
  - Dysgeusia [Not Recovered/Not Resolved]
  - Fatigue [Not Recovered/Not Resolved]
  - Product dose omission issue [Unknown]

NARRATIVE: CASE EVENT DATE: 20220101
